FAERS Safety Report 9917090 (Version 2)
Quarter: 2014Q1

REPORT INFORMATION
  Report Type: Report from Study
  Country: US (occurrence: US)
  Receive Date: 20140221
  Receipt Date: 20140221
  Transmission Date: 20141002
  Serious: Yes (Other)
  Sender: FDA-Public Use
  Company Number: US-BRISTOL-MYERS SQUIBB COMPANY-18965533

PATIENT
  Age: 33 Year
  Sex: Female

DRUGS (1)
  1. BYDUREON [Suspect]
     Dosage: AUTO INJ
     Route: 058
     Dates: start: 20130228, end: 20130413

REACTIONS (2)
  - Pregnancy [Recovered/Resolved]
  - Abortion induced [Unknown]
